FAERS Safety Report 9437812 (Version 1)
Quarter: 2013Q3

REPORT INFORMATION
  Report Type: Spontaneous
  Country: US (occurrence: US)
  Receive Date: 20130802
  Receipt Date: 20130802
  Transmission Date: 20140515
  Serious: Yes (Other)
  Sender: FDA-Public Use
  Company Number: US-BRISTOL-MYERS SQUIBB COMPANY-18828673

PATIENT
  Sex: Female

DRUGS (2)
  1. COUMADIN [Suspect]
     Dosage: 1.5 TAB, 1 TABLET ON SUNDAY, 1 PILL ON SATURDAY, THURSDAY, TUESDAY, AND THEN .5 PILL/DAY
  2. LOVENOX [Suspect]

REACTIONS (1)
  - Deep vein thrombosis [Recovered/Resolved]
